FAERS Safety Report 7814591-1 (Version None)
Quarter: 2011Q4

REPORT INFORMATION
  Report Type: 
  Country: None (occurrence: None)
  Receive Date: 20111014
  Receipt Date: 20111012
  Transmission Date: 20120403
  Serious: Yes (Hospitalization, Other)
  Sender: FDA-Public Use
  Company Number: PHHY2010FR20267

PATIENT
  Age: 6 Year
  Sex: Male

DRUGS (5)
  1. FOLDINE [Concomitant]
  2. IBUPROFEN (ADVIL) [Suspect]
     Indication: PAIN
     Dosage: UNK
     Dates: start: 20090213, end: 20090214
  3. PHENOXYMETHYL PENICILLIN [Concomitant]
  4. EXJADE [Suspect]
     Indication: PAIN
     Dosage: UNK
     Dates: start: 20070101, end: 20100219
  5. HYDREA [Suspect]
     Indication: PAIN
     Dosage: UNK
     Dates: start: 20080701, end: 20100219

REACTIONS (5)
  - RENAL TUBULAR NECROSIS [None]
  - RENAL FUNCTION TEST ABNORMAL [None]
  - VOMITING [None]
  - FOOD INTOLERANCE [None]
  - POLYURIA [None]
